FAERS Safety Report 8589571-1 (Version None)
Quarter: 2012Q3

REPORT INFORMATION
  Report Type: 
  Country: None (occurrence: None)
  Receive Date: 20120813
  Receipt Date: 20120801
  Transmission Date: 20120928
  Serious: Yes (Hospitalization)
  Sender: FDA-Public Use
  Company Number: US-ACTELION-A-NJ2012-67333

PATIENT
  Age: 79 Year
  Sex: Female

DRUGS (3)
  1. COUMADIN [Concomitant]
  2. TYVASO [Concomitant]
  3. TRACLEER [Suspect]
     Indication: PULMONARY ARTERIAL HYPERTENSION
     Dosage: UNK
     Route: 048

REACTIONS (2)
  - CHEST DISCOMFORT [None]
  - PULMONARY OEDEMA [None]
